FAERS Safety Report 4915588-1 (Version None)
Quarter: 2006Q1

REPORT INFORMATION
  Report Type: 
  Country: None (occurrence: None)
  Receive Date: 20060113
  Receipt Date: 20050927
  Transmission Date: 20060701
  Serious: No
  Sender: FDA-Public Use
  Company Number: 2005SP003202

PATIENT
  Age: 48 Year
  Sex: Female
  Weight: 86.1834 kg

DRUGS (3)
  1. LUNESTA [Suspect]
     Indication: INSOMNIA
     Dosage: 2 MG;ORAL
     Route: 048
     Dates: start: 20050901, end: 20050901
  2. SYNTHROID [Concomitant]
  3. COZAAR [Concomitant]

REACTIONS (3)
  - HYPERHIDROSIS [None]
  - PARADOXICAL DRUG REACTION [None]
  - POLLAKIURIA [None]
